FAERS Safety Report 23359945 (Version 4)
Quarter: 2024Q1

REPORT INFORMATION
  Report Type: Spontaneous
  Country: CO (occurrence: CO)
  Receive Date: 20240103
  Receipt Date: 20240325
  Transmission Date: 20240409
  Serious: Yes (Hospitalization, Other)
  Sender: FDA-Public Use
  Company Number: CO-002147023-NVSC2023CO081483

PATIENT
  Sex: Female
  Weight: 59 kg

DRUGS (5)
  1. FULVESTRANT [Suspect]
     Active Substance: FULVESTRANT
     Indication: Breast cancer
     Dosage: UNK
     Route: 065
  2. KISQALI [Suspect]
     Active Substance: RIBOCICLIB
     Indication: Hormone receptor positive HER2 negative breast cancer
     Dosage: 600 MG, QD (STARTED 21 DAY CYCLE)
     Route: 048
     Dates: start: 20230405, end: 20231019
  3. KISQALI [Suspect]
     Active Substance: RIBOCICLIB
     Dosage: 600 MG, QD
     Route: 065
     Dates: start: 20230307, end: 202306
  4. KISQALI [Suspect]
     Active Substance: RIBOCICLIB
     Dosage: UNK, QD
     Route: 048
  5. ZOLEDRONIC ACID [Suspect]
     Active Substance: ZOLEDRONIC ACID
     Indication: Product used for unknown indication
     Dosage: UNK
     Route: 065
     Dates: start: 20230307

REACTIONS (13)
  - Mouth injury [Unknown]
  - Gastrointestinal infection [Unknown]
  - General physical condition abnormal [Unknown]
  - Burning sensation [Unknown]
  - Vomiting [Unknown]
  - Metastases to bone [Unknown]
  - Lymphoedema [Unknown]
  - Intestinal obstruction [Unknown]
  - Illness [Unknown]
  - Breast pain [Unknown]
  - Breast inflammation [Unknown]
  - Erythema [Unknown]
  - Decreased immune responsiveness [Unknown]
